FAERS Safety Report 6328264-8 (Version None)
Quarter: 2009Q3

REPORT INFORMATION
  Report Type: 
  Country: None (occurrence: None)
  Receive Date: 20090825
  Receipt Date: 20090311
  Transmission Date: 20100115
  Serious: No
  Sender: FDA-Public Use
  Company Number: US-ABBOTT-09P-163-0562487-00

PATIENT
  Age: 37 Year
  Sex: Female

DRUGS (2)
  1. SYNTHROID [Suspect]
     Indication: DRUG USE FOR UNKNOWN INDICATION
     Dates: start: 20081231
  2. LANTUS [Interacting]
     Indication: TYPE 1 DIABETES MELLITUS
     Route: 058
     Dates: start: 20080101

REACTIONS (4)
  - BLOOD GLUCOSE DECREASED [None]
  - DRUG INTERACTION [None]
  - HYPERHIDROSIS [None]
  - PALPITATIONS [None]
